FAERS Safety Report 8155525-2 (Version None)
Quarter: 2012Q1

REPORT INFORMATION
  Report Type: 
  Country: None (occurrence: None)
  Receive Date: 20120222
  Receipt Date: 20120215
  Transmission Date: 20120608
  Serious: Yes (Hospitalization, Other)
  Sender: FDA-Public Use
  Company Number: US-BAYER-201039637NA

PATIENT
  Age: 35 Year
  Sex: Female
  Weight: 97.506 kg

DRUGS (9)
  1. COUMADIN [Concomitant]
     Dosage: UNK
     Dates: start: 20090120
  2. MICRONOR [Concomitant]
  3. OXYCODONE HCL [Concomitant]
     Dosage: 5 MG, Q4HR
     Route: 048
     Dates: start: 20090126
  4. COUMADIN [Concomitant]
     Dosage: 2 MG, QD
     Route: 048
  5. VICODIN [Concomitant]
     Dosage: UNK UNK, PRN
     Route: 048
  6. YAZ [Suspect]
     Indication: ORAL CONTRACEPTION
     Route: 048
     Dates: start: 20070814, end: 20090101
  7. VITAMIN D [Concomitant]
     Dosage: 5000 MG, OW
     Route: 048
  8. LORAZEPAM [Concomitant]
     Dosage: 0.5 MG, Q4HR
     Route: 048
     Dates: start: 20090126
  9. YAZ [Suspect]
     Indication: PELVIC PAIN

REACTIONS (6)
  - POST THROMBOTIC SYNDROME [None]
  - DEEP VEIN THROMBOSIS [None]
  - PALPITATIONS [None]
  - PULMONARY HYPERTENSION [None]
  - ANXIETY [None]
  - PULMONARY EMBOLISM [None]
